FAERS Safety Report 23333577 (Version 1)
Quarter: 2023Q4

REPORT INFORMATION
  Report Type: Spontaneous
  Country: DE (occurrence: None)
  Receive Date: 20231222
  Receipt Date: 20231222
  Transmission Date: 20240109
  Serious: Yes (Other)
  Sender: FDA-Public Use
  Company Number: 2023A291069

PATIENT
  Age: 77 Year
  Sex: Male
  Weight: 77 kg

DRUGS (90)
  1. CRESTOR [Suspect]
     Active Substance: ROSUVASTATIN CALCIUM
     Indication: Product used for unknown indication
     Dosage: UNK
  2. ROSUVASTATIN [Suspect]
     Active Substance: ROSUVASTATIN
     Indication: Product used for unknown indication
     Dosage: UNK
  3. MOMETASONE [Suspect]
     Active Substance: MOMETASONE
     Indication: Product used for unknown indication
     Dosage: UNK
  4. TAMSULOSIN [Suspect]
     Active Substance: TAMSULOSIN
     Indication: Product used for unknown indication
     Dosage: UNK
  5. IBUPROFEN [Suspect]
     Active Substance: IBUPROFEN
     Indication: Product used for unknown indication
     Dosage: UNK UNK, AS NEEDED INTERMITTENT
  6. GINKGO [Suspect]
     Active Substance: GINKGO
     Indication: Product used for unknown indication
     Dosage: UNK UNK, 2/DAY
  7. ALBUTEROL [Suspect]
     Active Substance: ALBUTEROL
     Indication: Secretion discharge
     Dosage: UNK
  8. TADALAFIL [Suspect]
     Active Substance: TADALAFIL
     Indication: Product used for unknown indication
     Dosage: UNK
  9. IBUPROFEN [Suspect]
     Active Substance: IBUPROFEN
     Indication: Product used for unknown indication
     Dosage: UNK
  10. GELATIN\POTASSIUM CHLORIDE\SODIUM CHLORIDE [Suspect]
     Active Substance: GELATIN\POTASSIUM CHLORIDE\SODIUM CHLORIDE
     Indication: Dyspnoea
     Dosage: 10 DROP, 1/DAY
  11. GELATIN\POTASSIUM CHLORIDE\SODIUM CHLORIDE [Suspect]
     Active Substance: GELATIN\POTASSIUM CHLORIDE\SODIUM CHLORIDE
     Indication: Nasopharyngitis
     Dosage: 10 DROP, 1/DAY
  12. GELATIN\POTASSIUM CHLORIDE\SODIUM CHLORIDE [Suspect]
     Active Substance: GELATIN\POTASSIUM CHLORIDE\SODIUM CHLORIDE
     Indication: Bronchitis
     Dosage: 10 DROP, 1/DAY
  13. GELATIN\POTASSIUM CHLORIDE\SODIUM CHLORIDE [Suspect]
     Active Substance: GELATIN\POTASSIUM CHLORIDE\SODIUM CHLORIDE
     Indication: Pneumothorax
     Dosage: 10 DROP, 1/DAY
  14. GELATIN\POTASSIUM CHLORIDE\SODIUM CHLORIDE [Suspect]
     Active Substance: GELATIN\POTASSIUM CHLORIDE\SODIUM CHLORIDE
     Indication: Asthma
     Dosage: 10 DROP, 1/DAY
  15. GELATIN\POTASSIUM CHLORIDE\SODIUM CHLORIDE [Suspect]
     Active Substance: GELATIN\POTASSIUM CHLORIDE\SODIUM CHLORIDE
     Indication: Dysphonia
     Dosage: 10 DROP, 1/DAY
  16. GELATIN\POTASSIUM CHLORIDE\SODIUM CHLORIDE [Suspect]
     Active Substance: GELATIN\POTASSIUM CHLORIDE\SODIUM CHLORIDE
     Indication: Cough
     Dosage: 10 DROP, 1/DAY
  17. XARELTO [Suspect]
     Active Substance: RIVAROXABAN
     Indication: Product used for unknown indication
     Dosage: UNK
  18. CIALIS [Suspect]
     Active Substance: TADALAFIL
     Indication: Product used for unknown indication
     Dosage: UNK
  19. CLOPIDOGREL [Suspect]
     Active Substance: CLOPIDOGREL BISULFATE
     Indication: Product used for unknown indication
     Dosage: UNK UNK, 2/DAY
  20. ERGOCALCIFEROL [Suspect]
     Active Substance: ERGOCALCIFEROL
     Indication: Product used for unknown indication
     Dosage: 2000 INTERNATIONAL UNIT
  21. MAGNESIUM ASPARTATE\POTASSIUM ASPARTATE [Suspect]
     Active Substance: MAGNESIUM ASPARTATE\POTASSIUM ASPARTATE
     Indication: Product used for unknown indication
     Dosage: UNK
  22. CALCIUM CARBONATE [Suspect]
     Active Substance: CALCIUM CARBONATE
     Indication: Product used for unknown indication
     Dosage: 1 DOSAGE FORM
  23. CALCIUM CARBONATE [Suspect]
     Active Substance: CALCIUM CARBONATE
     Indication: Product used for unknown indication
     Dosage: 500 MILLIGRAM, 2/DAY
  24. HERBALS\PHENYL SALICYLATE [Suspect]
     Active Substance: HERBALS\PHENYL SALICYLATE
     Indication: Bronchitis
     Dosage: 10 DROP, 1/DAY
  25. HERBALS\PHENYL SALICYLATE [Suspect]
     Active Substance: HERBALS\PHENYL SALICYLATE
     Indication: Asthma
     Dosage: 10 DROP, 1/DAY
  26. MAGNESIUM OROTATE [Suspect]
     Active Substance: MAGNESIUM OROTATE
     Indication: Product used for unknown indication
     Dosage: UNK UNK, 3/DAY
  27. MAGNESIUM OROTATE [Suspect]
     Active Substance: MAGNESIUM OROTATE
     Indication: Product used for unknown indication
     Dosage: UNK
  28. FLUTICASONE PROPIONATE [Suspect]
     Active Substance: FLUTICASONE PROPIONATE
     Indication: Pneumothorax
     Dosage: UNK
  29. FLUTICASONE PROPIONATE [Suspect]
     Active Substance: FLUTICASONE PROPIONATE
     Indication: Secretion discharge
     Dosage: UNK
  30. FLUTICASONE PROPIONATE [Suspect]
     Active Substance: FLUTICASONE PROPIONATE
     Indication: Cough
     Dosage: UNK
  31. FLUTICASONE PROPIONATE [Suspect]
     Active Substance: FLUTICASONE PROPIONATE
     Indication: Dyspnoea
     Dosage: UNK
  32. FLUTICASONE PROPIONATE [Suspect]
     Active Substance: FLUTICASONE PROPIONATE
     Indication: Dysphonia
     Dosage: UNK
  33. FLUTICASONE PROPIONATE [Suspect]
     Active Substance: FLUTICASONE PROPIONATE
     Indication: Nasopharyngitis
     Dosage: UNK
  34. FLUTICASONE PROPIONATE\SALMETEROL XINAFOATE [Suspect]
     Active Substance: FLUTICASONE PROPIONATE\SALMETEROL XINAFOATE
     Indication: Dyspnoea
     Dosage: UNK
  35. FLUTICASONE PROPIONATE\SALMETEROL XINAFOATE [Suspect]
     Active Substance: FLUTICASONE PROPIONATE\SALMETEROL XINAFOATE
     Indication: Secretion discharge
     Dosage: UNK
  36. FLUTICASONE PROPIONATE\SALMETEROL XINAFOATE [Suspect]
     Active Substance: FLUTICASONE PROPIONATE\SALMETEROL XINAFOATE
     Indication: Dysphonia
     Dosage: UNK
  37. FLUTICASONE PROPIONATE\SALMETEROL XINAFOATE [Suspect]
     Active Substance: FLUTICASONE PROPIONATE\SALMETEROL XINAFOATE
     Indication: Pneumothorax
     Dosage: UNK
  38. FLUTICASONE PROPIONATE\SALMETEROL XINAFOATE [Suspect]
     Active Substance: FLUTICASONE PROPIONATE\SALMETEROL XINAFOATE
     Indication: Cough
     Dosage: UNK
  39. FLUTICASONE PROPIONATE\SALMETEROL XINAFOATE [Suspect]
     Active Substance: FLUTICASONE PROPIONATE\SALMETEROL XINAFOATE
     Indication: Nasopharyngitis
     Dosage: UNK
  40. MOMETASONE FUROATE [Suspect]
     Active Substance: MOMETASONE FUROATE
     Indication: Product used for unknown indication
     Dosage: UNK
  41. COLESEVELAM [Suspect]
     Active Substance: COLESEVELAM
     Indication: Product used for unknown indication
     Dosage: UNK
  42. CALCIUM PANTOTHENATE [Suspect]
     Active Substance: CALCIUM PANTOTHENATE
     Indication: Product used for unknown indication
     Dosage: UNK UNK, 3/DAY
  43. TOCOPHEROL [Suspect]
     Active Substance: TOCOPHEROL
     Indication: Product used for unknown indication
     Dosage: 20000 INTERNATIONAL UNIT
  44. ATROVENT [Suspect]
     Active Substance: IPRATROPIUM BROMIDE
     Indication: Dysphonia
     Dosage: UNK
  45. ATROVENT [Suspect]
     Active Substance: IPRATROPIUM BROMIDE
     Indication: Nasopharyngitis
     Dosage: UNK
  46. ATROVENT [Suspect]
     Active Substance: IPRATROPIUM BROMIDE
     Indication: Nasopharyngitis
     Dosage: UNK
  47. ATROVENT [Suspect]
     Active Substance: IPRATROPIUM BROMIDE
     Indication: Cough
     Dosage: UNK
  48. ATROVENT [Suspect]
     Active Substance: IPRATROPIUM BROMIDE
     Indication: Secretion discharge
     Dosage: UNK
  49. ATROVENT [Suspect]
     Active Substance: IPRATROPIUM BROMIDE
     Indication: Chest discomfort
     Dosage: UNK
  50. ATROVENT [Suspect]
     Active Substance: IPRATROPIUM BROMIDE
     Indication: Pneumothorax
     Dosage: UNK
  51. ATROVENT [Suspect]
     Active Substance: IPRATROPIUM BROMIDE
     Indication: Secretion discharge
     Dosage: UNK
  52. ATROVENT [Suspect]
     Active Substance: IPRATROPIUM BROMIDE
     Indication: Dyspnoea
     Dosage: UNK
  53. MOMETASONE FUROATE [Suspect]
     Active Substance: MOMETASONE FUROATE
     Indication: Product used for unknown indication
     Dosage: 2 DOSAGE FORM, 2/DAY
  54. DICLOFENAC [Suspect]
     Active Substance: DICLOFENAC
     Indication: Product used for unknown indication
     Dosage: UNK
  55. PRALUENT [Suspect]
     Active Substance: ALIROCUMAB
     Indication: Product used for unknown indication
     Dosage: UNK
  56. DICLOFENAC DIETHYLAMINE [Suspect]
     Active Substance: DICLOFENAC DIETHYLAMINE
     Indication: Product used for unknown indication
     Dosage: UNK
  57. MAGNESIUM ASPARTATE\POTASSIUM ASPARTATE [Suspect]
     Active Substance: MAGNESIUM ASPARTATE\POTASSIUM ASPARTATE
     Indication: Product used for unknown indication
     Dosage: UNK
  58. ASPIRIN [Suspect]
     Active Substance: ASPIRIN
     Indication: Product used for unknown indication
     Dosage: 100 MILLIGRAM
  59. HERBALS [Suspect]
     Active Substance: HERBALS
     Indication: Product used for unknown indication
     Dosage: UNK
  60. CLOPIDOGREL BISULFATE [Suspect]
     Active Substance: CLOPIDOGREL BISULFATE
     Indication: Product used for unknown indication
     Dosage: UNK
  61. AMBROXOL HYDROCHLORIDE [Suspect]
     Active Substance: AMBROXOL HYDROCHLORIDE
     Indication: Product used for unknown indication
     Dosage: UNK
  62. SALMETEROL [Suspect]
     Active Substance: SALMETEROL
     Indication: Nasopharyngitis
     Dosage: UNK
  63. SALMETEROL [Suspect]
     Active Substance: SALMETEROL
     Indication: Pneumothorax
     Dosage: UNK
  64. SALMETEROL [Suspect]
     Active Substance: SALMETEROL
     Indication: Pneumothorax
     Dosage: UNK
  65. SALMETEROL [Suspect]
     Active Substance: SALMETEROL
     Indication: Secretion discharge
     Dosage: UNK
  66. SALMETEROL [Suspect]
     Active Substance: SALMETEROL
     Indication: Secretion discharge
     Dosage: UNK
  67. SALMETEROL [Suspect]
     Active Substance: SALMETEROL
     Indication: Dyspnoea
     Dosage: UNK
  68. ACETIC ACID\DELTAMETHRIN [Suspect]
     Active Substance: ACETIC ACID\DELTAMETHRIN
     Indication: Product used for unknown indication
     Dosage: 500 INTERNATIONAL UNIT, 1/DAY
  69. CALCIUM [Suspect]
     Active Substance: CALCIUM
     Indication: Product used for unknown indication
     Dosage: 1000 MILLIGRAM
  70. BISOPROLOL [Suspect]
     Active Substance: BISOPROLOL\BISOPROLOL FUMARATE
     Indication: Product used for unknown indication
     Dosage: UNK UNK, 1/DAY
  71. ALBUTEROL SULFATE [Suspect]
     Active Substance: ALBUTEROL SULFATE
     Indication: Pneumothorax
     Dosage: UNK
  72. ALBUTEROL SULFATE [Suspect]
     Active Substance: ALBUTEROL SULFATE
     Indication: Dysphonia
     Dosage: UNK
  73. ALBUTEROL SULFATE [Suspect]
     Active Substance: ALBUTEROL SULFATE
     Indication: Pneumothorax
     Dosage: UNK
  74. ALBUTEROL SULFATE [Suspect]
     Active Substance: ALBUTEROL SULFATE
     Indication: Chest discomfort
     Dosage: UNK
  75. ALBUTEROL SULFATE [Suspect]
     Active Substance: ALBUTEROL SULFATE
     Indication: Secretion discharge
     Dosage: UNK
  76. ALBUTEROL SULFATE [Suspect]
     Active Substance: ALBUTEROL SULFATE
     Indication: Nasopharyngitis
     Dosage: UNK
  77. ALBUTEROL SULFATE [Suspect]
     Active Substance: ALBUTEROL SULFATE
     Indication: Productive cough
     Dosage: UNK
  78. .ALPHA.-TOCOPHEROL ACETATE, DL- [Suspect]
     Active Substance: .ALPHA.-TOCOPHEROL ACETATE, DL-
     Indication: Product used for unknown indication
     Dosage: 1 DOSAGE FORM, 1/WEEK
  79. CALCIUM PANTOTHENATE [Suspect]
     Active Substance: CALCIUM PANTOTHENATE
     Indication: Product used for unknown indication
     Dosage: UNK UNK, EVERY 8 HRS
  80. ASPIRIN CALCIUM [Suspect]
     Active Substance: ASPIRIN CALCIUM
     Indication: Product used for unknown indication
     Dosage: UNK
  81. COLESEVELAM HYDROCHLORIDE [Suspect]
     Active Substance: COLESEVELAM HYDROCHLORIDE
     Indication: Product used for unknown indication
     Dosage: UNK
  82. GINKGO [Suspect]
     Active Substance: GINKGO
     Indication: Product used for unknown indication
     Dosage: UNK UNK, 2/DAY
  83. BIOTIN [Suspect]
     Active Substance: BIOTIN
     Indication: Product used for unknown indication
     Dosage: 1 DOSAGE FORM, 1/DAY
  84. EVOLOCUMAB [Concomitant]
     Active Substance: EVOLOCUMAB
     Indication: Product used for unknown indication
     Dosage: UNK, 3/DAY
  85. CALCIUM CARBONATE [Concomitant]
     Active Substance: CALCIUM CARBONATE
     Indication: Product used for unknown indication
     Dosage: UNK
  86. PREDNISOLONE [Concomitant]
     Active Substance: PREDNISOLONE
     Indication: Product used for unknown indication
     Dosage: UNK
  87. OLMESARTAN MEDOXOMIL [Concomitant]
     Active Substance: OLMESARTAN MEDOXOMIL
     Indication: Product used for unknown indication
     Dosage: UNK
  88. AMBROXOL HYDROCHLORIDE [Concomitant]
     Active Substance: AMBROXOL HYDROCHLORIDE
     Indication: Product used for unknown indication
     Dosage: UNK
  89. REPATHA [Concomitant]
     Active Substance: EVOLOCUMAB
     Indication: Product used for unknown indication
     Dosage: 1 DOSAGE FORM, 1/WEEK
  90. VOTUM [Concomitant]
     Indication: Product used for unknown indication
     Dosage: UNK

REACTIONS (26)
  - Dysphonia [Not Recovered/Not Resolved]
  - Exostosis [Unknown]
  - Myoglobin blood increased [Unknown]
  - Plantar fasciitis [Unknown]
  - Obstructive airways disorder [Unknown]
  - Nasopharyngitis [Unknown]
  - Atrial fibrillation [Recovered/Resolved]
  - Increased upper airway secretion [Unknown]
  - Obstructive sleep apnoea syndrome [Unknown]
  - Brain natriuretic peptide increased [Unknown]
  - Dyspnoea [Unknown]
  - Plantar fasciitis [Unknown]
  - Muscle spasms [Unknown]
  - Obstructive airways disorder [Unknown]
  - Pneumothorax [Not Recovered/Not Resolved]
  - Chest discomfort [Unknown]
  - Eosinophilia [Unknown]
  - Muscle spasms [Unknown]
  - Wheezing [Unknown]
  - Sensation of foreign body [Unknown]
  - Fractional exhaled nitric oxide increased [Recovered/Resolved]
  - Cough [Not Recovered/Not Resolved]
  - Chest discomfort [Not Recovered/Not Resolved]
  - Coronary artery disease [Unknown]
  - Nasopharyngitis [Unknown]
  - Dyspnoea exertional [Unknown]

NARRATIVE: CASE EVENT DATE: 20180101
